FAERS Safety Report 11855603 (Version 1)
Quarter: 2015Q4

REPORT INFORMATION
  Report Type: Spontaneous
  Country: US (occurrence: US)
  Receive Date: 20151221
  Receipt Date: 20151221
  Transmission Date: 20160305
  Serious: No
  Sender: FDA-Public Use
  Company Number: US-PERRIGO-15US002959

PATIENT
  Sex: Female

DRUGS (2)
  1. BACITRACIN OPHTHALMIC USP 500U/G 0S4 [Suspect]
     Active Substance: BACITRACIN
     Indication: EYE INFECTION
     Dosage: 1 APPLICATION, BID TO LEFT EYE
     Route: 047
     Dates: start: 201512, end: 201501
  2. BACITRACIN OPHTHALMIC USP 500U/G 0S4 [Suspect]
     Active Substance: BACITRACIN
     Indication: DRY EYE
     Dosage: 1 APPLICATION, QD TO BOTH EYES
     Route: 047
     Dates: start: 201501

REACTIONS (3)
  - Eye discharge [Unknown]
  - Therapeutic response unexpected [Unknown]
  - Off label use [Unknown]

NARRATIVE: CASE EVENT DATE: 201501
